FAERS Safety Report 9033129 (Version 1)
Quarter: 2013Q1

REPORT INFORMATION
  Report Type: Spontaneous
  Country: US (occurrence: US)
  Receive Date: 20130128
  Receipt Date: 20130128
  Transmission Date: 20140127
  Serious: No
  Sender: FDA-Public Use
  Company Number: US-MYLANLABS-2012S1008149

PATIENT
  Age: 78 Year
  Sex: Male
  Weight: 72.58 kg

DRUGS (3)
  1. EXTENDED PHENYTOIN SODIUM CAPSULES, USP [Suspect]
     Indication: CONVULSION
     Route: 048
     Dates: start: 201201
  2. SYNTHROID [Concomitant]
     Route: 048
  3. NEURONTIN [Concomitant]
     Route: 048

REACTIONS (1)
  - Anticonvulsant drug level below therapeutic [Not Recovered/Not Resolved]
